FAERS Safety Report 4997297-6 (Version None)
Quarter: 2006Q2

REPORT INFORMATION
  Report Type: 
  Country: None (occurrence: None)
  Receive Date: 20060505
  Receipt Date: 20060424
  Transmission Date: 20061013
  Serious: Yes (Other)
  Sender: FDA-Public Use
  Company Number: 2006054657

PATIENT
  Age: 75 Year
  Sex: Female

DRUGS (1)
  1. LISTERINE ANTISEPTIC MOUTHWASH (MENTHOL, METHYL SALICYLATE, EUCALYPTOL [Suspect]
     Indication: DENTAL DISORDER PROPHYLAXIS
     Dosage: ^ENOUGH TO SWISH IN HER MOUTH^
     Dates: start: 20060421, end: 20060421

REACTIONS (14)
  - APHASIA [None]
  - COUGH [None]
  - DRY MOUTH [None]
  - FEELING ABNORMAL [None]
  - GINGIVAL PAIN [None]
  - INCORRECT ROUTE OF DRUG ADMINISTRATION [None]
  - INSOMNIA [None]
  - ORAL DISCOMFORT [None]
  - ORAL INTAKE REDUCED [None]
  - ORAL MUCOSAL BLISTERING [None]
  - ORAL MUCOSAL DISCOLOURATION [None]
  - ORAL MUCOSAL EXFOLIATION [None]
  - ORAL PAIN [None]
  - THERMAL BURN [None]
